FAERS Safety Report 12159982 (Version 1)
Quarter: 2016Q1

REPORT INFORMATION
  Report Type: Spontaneous
  Country: AU (occurrence: AU)
  Receive Date: 20160308
  Receipt Date: 20160308
  Transmission Date: 20160526
  Serious: Yes (Hospitalization)
  Sender: FDA-Public Use
  Company Number: AU-BAYER-2016-045560

PATIENT
  Sex: Female

DRUGS (1)
  1. ULTRAVIST [Suspect]
     Active Substance: IOPROMIDE
     Dosage: UNK UNK, ONCE
     Dates: start: 20151029

REACTIONS (6)
  - Heart rate increased [None]
  - Loss of consciousness [None]
  - Pharyngeal hypoaesthesia [None]
  - Generalised erythema [None]
  - Foaming at mouth [None]
  - Feeling hot [None]

NARRATIVE: CASE EVENT DATE: 20151029
